FAERS Safety Report 23564910 (Version 1)
Quarter: 2024Q1

REPORT INFORMATION
  Report Type: Spontaneous
  Country: HR (occurrence: HR)
  Receive Date: 20240226
  Receipt Date: 20240226
  Transmission Date: 20240409
  Serious: Yes (Other)
  Sender: FDA-Public Use
  Company Number: None

PATIENT
  Age: 32 Year
  Sex: Female

DRUGS (2)
  1. ENTYVIO [Suspect]
     Active Substance: VEDOLIZUMAB
     Indication: Crohn^s disease
     Dosage: 300 MILLIGRAM, Q4WEEKS
     Route: 042
     Dates: start: 20220414, end: 20240104
  2. IDACIO [Suspect]
     Active Substance: ADALIMUMAB-AACF
     Indication: Crohn^s disease
     Dosage: JA?INA LIJEKA40 MG DOZIRANJE SVAKA 2 TJ
     Route: 058
     Dates: start: 20230110, end: 20240104

REACTIONS (1)
  - Crohn^s disease [Recovering/Resolving]

NARRATIVE: CASE EVENT DATE: 20240104
